FAERS Safety Report 21836419 (Version 2)
Quarter: 2024Q1

REPORT INFORMATION
  Report Type: Spontaneous
  Country: US (occurrence: US)
  Receive Date: 20230109
  Receipt Date: 20240117
  Transmission Date: 20240410
  Serious: No
  Sender: FDA-Public Use
  Company Number: US-TERSERA THERAPEUTICS LLC-2022TRS004740

PATIENT

DRUGS (7)
  1. PRIALT [Suspect]
     Active Substance: ZICONOTIDE ACETATE
     Indication: Back pain
     Dosage: UNK
     Route: 037
  2. PRIALT [Suspect]
     Active Substance: ZICONOTIDE ACETATE
     Dosage: RATE DECREASED OF 50.4 %
     Route: 037
  3. PRIALT [Suspect]
     Active Substance: ZICONOTIDE ACETATE
     Dosage: RATE WAS INCREASED 50.1 %
     Route: 037
  4. PRIALT [Suspect]
     Active Substance: ZICONOTIDE ACETATE
     Dosage: RATE WAS DECREASED 19.9 %
     Route: 037
  5. PRIALT [Suspect]
     Active Substance: ZICONOTIDE ACETATE
     Dosage: RATE WAS DECREASED
     Route: 037
  6. MORPHINE [Suspect]
     Active Substance: MORPHINE
     Indication: Product used for unknown indication
     Dosage: 1.04561 MG/QD (CONCENTRATION: 5MG)
     Route: 037
  7. MORPHINE [Suspect]
     Active Substance: MORPHINE
     Dosage: 0.7316 MG, QD (CONCENTRATION: 2.5MG)
     Route: 037

REACTIONS (15)
  - Blood pressure increased [Recovered/Resolved]
  - Adverse drug reaction [Recovered/Resolved]
  - Dizziness [Recovered/Resolved]
  - Lethargy [Recovering/Resolving]
  - Nausea [Recovered/Resolved]
  - Headache [Recovered/Resolved]
  - Anxiety [Unknown]
  - Pruritus [Unknown]
  - Disorientation [Unknown]
  - Confusional state [Unknown]
  - Brain fog [Not Recovered/Not Resolved]
  - Mood altered [Unknown]
  - Drug ineffective [Unknown]
  - Product use issue [Unknown]
  - Off label use [Unknown]

NARRATIVE: CASE EVENT DATE: 20221005
